FAERS Safety Report 8272590-2 (Version None)
Quarter: 2012Q2

REPORT INFORMATION
  Report Type: 
  Country: None (occurrence: None)
  Receive Date: 20120410
  Receipt Date: 20120402
  Transmission Date: 20120825
  Serious: Yes (Other)
  Sender: FDA-Public Use
  Company Number: US-ALLERGAN-1202740US

PATIENT
  Age: 51 Year
  Sex: Female
  Weight: 86.168 kg

DRUGS (6)
  1. BOTULINUM TOXIN TYPE A [Suspect]
     Dosage: 20 UNITS, SINGLE
     Route: 030
     Dates: start: 20120102, end: 20120102
  2. VERAPAMIL EXTENDED-RELEASE [Concomitant]
     Indication: HEADACHE
     Dosage: 180 MG, QD
     Route: 048
     Dates: start: 20110701
  3. MAXALT [Concomitant]
     Indication: HEADACHE
     Dosage: 10 MG, PRN
     Route: 048
     Dates: start: 20110401
  4. BOTULINUM TOXIN TYPE A [Suspect]
     Indication: MIGRAINE
     Dosage: 80 UNITS, SINGLE
     Route: 030
     Dates: start: 20120102, end: 20120102
  5. TOPAMAX [Concomitant]
     Indication: HEADACHE
     Dosage: 100 MG, BID
     Route: 048
     Dates: start: 20090701
  6. XOPENEX [Concomitant]
     Indication: ASTHMA
     Dosage: BREATHING MACHINE
     Route: 055
     Dates: start: 20120201, end: 20120207

REACTIONS (12)
  - ABASIA [None]
  - DYSSTASIA [None]
  - EYELID PTOSIS [None]
  - NECK PAIN [None]
  - BEDRIDDEN [None]
  - ASTHMA [None]
  - MUSCULAR WEAKNESS [None]
  - DRUG HYPERSENSITIVITY [None]
  - VOMITING [None]
  - DYSPNOEA [None]
  - PAIN IN EXTREMITY [None]
  - WEIGHT DECREASED [None]
